FAERS Safety Report 5307957-5 (Version None)
Quarter: 2007Q2

REPORT INFORMATION
  Report Type: 
  Country: None (occurrence: None)
  Receive Date: 20070426
  Receipt Date: 20070413
  Transmission Date: 20071010
  Serious: Yes (Hospitalization, Other)
  Sender: FDA-Public Use
  Company Number: 2006UW27260

PATIENT
  Age: 38 Year
  Sex: Female
  Weight: 71.8 kg

DRUGS (12)
  1. SEROQUEL [Suspect]
     Indication: BIPOLAR DISORDER
     Route: 048
     Dates: start: 20040101, end: 20040101
  2. SEROQUEL [Suspect]
     Route: 048
     Dates: start: 20040101, end: 20041019
  3. SEROQUEL [Suspect]
     Route: 048
     Dates: start: 20060908, end: 20061207
  4. SEROQUEL [Suspect]
     Dosage: REDUCED
     Route: 048
     Dates: start: 20060906, end: 20060907
  5. TOPAMAX [Suspect]
     Route: 048
  6. STRATTERA [Suspect]
     Route: 048
  7. TRAZODONE HCL [Concomitant]
     Route: 048
  8. FOLATE [Concomitant]
  9. ESKALITH CR [Concomitant]
     Route: 048
  10. LUNESTA [Concomitant]
  11. ATIVAN [Concomitant]
     Dosage: PRN
     Route: 048
  12. DEPO-PROVERA [Concomitant]
     Dates: start: 20061001

REACTIONS (5)
  - APHASIA [None]
  - DYSPHEMIA [None]
  - HEMIPARESIS [None]
  - HEMIPLEGIA [None]
  - SPEECH DISORDER [None]
